FAERS Safety Report 8997911 (Version 1)
Quarter: 2013Q1

REPORT INFORMATION
  Report Type: Spontaneous
  Country: US (occurrence: US)
  Receive Date: 20130104
  Receipt Date: 20130104
  Transmission Date: 20140127
  Serious: Yes (Other)
  Sender: FDA-Public Use
  Company Number: US-JNJFOC-20121212671

PATIENT
  Sex: Female

DRUGS (2)
  1. SUDAFED [Suspect]
     Route: 065
  2. SUDAFED [Suspect]
     Indication: PRODUCT USED FOR UNKNOWN INDICATION
     Route: 065

REACTIONS (4)
  - Syncope [Unknown]
  - Nervousness [Unknown]
  - Restlessness [Unknown]
  - Hyperhidrosis [None]
